FAERS Safety Report 8975519 (Version 2)
Quarter: 2012Q4

REPORT INFORMATION
  Report Type: 
  Country: US (occurrence: US)
  Receive Date: 20121219
  Receipt Date: 20121228
  Transmission Date: 20130627
  Serious: No
  Sender: FDA-Public Use
  Company Number: US-VERTEX PHARMACEUTICALS INC.-2012-026243

PATIENT
  Sex: Male
  Weight: 79 kg

DRUGS (3)
  1. INCIVEK [Suspect]
     Indication: HEPATITIS C
     Dosage: 750 mg, tid
     Route: 048
     Dates: start: 20121105
  2. COPEGUS [Suspect]
     Indication: HEPATITIS C
     Dosage: 2 tabs am and 3 tabs pm, bid
     Route: 048
     Dates: start: 20121105
  3. PEGASYS [Suspect]
     Indication: HEPATITIS C
     Dosage: UNK
     Dates: start: 20121105

REACTIONS (1)
  - Pruritus [Not Recovered/Not Resolved]
